FAERS Safety Report 13896830 (Version 1)
Quarter: 2017Q3

REPORT INFORMATION
  Report Type: Spontaneous
  Country: US (occurrence: US)
  Receive Date: 20170821
  Receipt Date: 20170821
  Transmission Date: 20171127
  Serious: Yes (Life-Threatening, Disabling, Other)
  Sender: FDA-Public Use
  Company Number: None

PATIENT
  Age: 33 Year
  Sex: Female
  Weight: 72 kg

DRUGS (2)
  1. EFFEXOR [Concomitant]
     Active Substance: VENLAFAXINE HYDROCHLORIDE
  2. VENLAFAXINE HCL [Suspect]
     Active Substance: VENLAFAXINE HYDROCHLORIDE
     Indication: BIPOLAR I DISORDER
     Dosage: ?          QUANTITY:2 TABLET(S);?
     Route: 048
     Dates: start: 20150930, end: 20170820

REACTIONS (10)
  - Tremor [None]
  - Musculoskeletal disorder [None]
  - Suicidal ideation [None]
  - Irritability [None]
  - Nausea [None]
  - Impaired work ability [None]
  - Vomiting [None]
  - Decreased appetite [None]
  - Vision blurred [None]
  - Weight decreased [None]

NARRATIVE: CASE EVENT DATE: 20160301
